FAERS Safety Report 10308553 (Version 1)
Quarter: 2014Q3

REPORT INFORMATION
  Report Type: Spontaneous
  Country: JP (occurrence: JP)
  Receive Date: 20140716
  Receipt Date: 20140716
  Transmission Date: 20150326
  Serious: Yes (Other)
  Sender: FDA-Public Use
  Company Number: PHHY2013JP158213

PATIENT
  Sex: Female

DRUGS (4)
  1. EXJADE [Suspect]
     Active Substance: DEFERASIROX
     Dosage: 500 MG, BID
  2. EXJADE [Suspect]
     Active Substance: DEFERASIROX
     Dosage: 35 MG/KG, (1500MG)
  3. EXJADE [Suspect]
     Active Substance: DEFERASIROX
     Dosage: 500 MG IN 50 CC OF WATER
  4. EXJADE [Suspect]
     Active Substance: DEFERASIROX
     Indication: APLASTIC ANAEMIA
     Dosage: 250 MG, DAILY

REACTIONS (5)
  - Decreased appetite [Unknown]
  - Lung neoplasm malignant [Unknown]
  - Condition aggravated [Unknown]
  - Metastases to oesophagus [Unknown]
  - Abnormal loss of weight [Unknown]
